FAERS Safety Report 16582822 (Version 1)
Quarter: 2019Q3

REPORT INFORMATION
  Report Type: Spontaneous
  Country: US (occurrence: US)
  Receive Date: 20190717
  Receipt Date: 20190717
  Transmission Date: 20191004
  Serious: Yes (Life-Threatening, Hospitalization, Other)
  Sender: FDA-Public Use
  Company Number: US-MYLANLABS-2019M1065904

PATIENT
  Age: 35 Year
  Sex: Male

DRUGS (1)
  1. DICLOFENAC [Suspect]
     Active Substance: DICLOFENAC
     Indication: BACK PAIN
     Dosage: FOR 1 WEEK
     Route: 065

REACTIONS (4)
  - Encephalopathy [Recovered/Resolved]
  - Seizure [Recovered/Resolved]
  - Systemic inflammatory response syndrome [Recovered/Resolved]
  - Thrombotic thrombocytopenic purpura [Recovered/Resolved]
